FAERS Safety Report 7630250-2 (Version None)
Quarter: 2011Q3

REPORT INFORMATION
  Report Type: 
  Country: None (occurrence: None)
  Receive Date: 20110722
  Receipt Date: 20110711
  Transmission Date: 20111222
  Serious: Yes (Hospitalization)
  Sender: FDA-Public Use
  Company Number: US-BAYER-2011-018452

PATIENT
  Age: 19 Year
  Sex: Female
  Weight: 56.689 kg

DRUGS (4)
  1. YAZ [Suspect]
     Indication: DYSMENORRHOEA
  2. YAZ [Suspect]
     Indication: ACNE
     Dosage: UNK
     Dates: start: 20080701, end: 20090701
  3. ALLEGRA [Concomitant]
     Indication: MULTIPLE ALLERGIES
     Dosage: 180 MG, QD
     Route: 048
     Dates: start: 20030101
  4. KLONOPIN [Concomitant]
     Indication: ANXIETY
     Dosage: 1 MG, TID
     Route: 048
     Dates: start: 20080101

REACTIONS (5)
  - CHEST PAIN [None]
  - EMOTIONAL DISTRESS [None]
  - PAIN [None]
  - INJURY [None]
  - PULMONARY EMBOLISM [None]
